FAERS Safety Report 8891060 (Version 1)
Quarter: 2012Q4

REPORT INFORMATION
  Report Type: 
  Country: US (occurrence: US)
  Receive Date: 20121107
  Receipt Date: 20121107
  Transmission Date: 20130627
  Serious: No
  Sender: FDA-Public Use
  Company Number: US-009507513-1211USA002062

PATIENT
  Sex: Male

DRUGS (1)
  1. SINGULAIR [Suspect]
     Dosage: UNK
     Route: 048

REACTIONS (5)
  - Mood altered [Recovered/Resolved]
  - Anxiety [Recovering/Resolving]
  - Sleep disorder [Recovered/Resolved]
  - Tic [Recovered/Resolved]
  - Hallucination [Recovered/Resolved]
